FAERS Safety Report 7671324-X (Version None)
Quarter: 2011Q3

REPORT INFORMATION
  Report Type: 
  Country: None (occurrence: None)
  Receive Date: 20110803
  Receipt Date: 20110728
  Transmission Date: 20111222
  Serious: Yes (Other)
  Sender: FDA-Public Use
  Company Number: B0735695A

PATIENT
  Age: 30 Year
  Sex: Female

DRUGS (3)
  1. VALACICLOVIR HYDROCHLORID [Concomitant]
  2. FOSCARNET SODIUM [Concomitant]
  3. ACYCLOVIR [Suspect]
     Indication: HERPES ZOSTER
     Dosage: THREE TIMES PER DAY / INTRA

REACTIONS (8)
  - OPTIC NEURITIS [None]
  - GENE MUTATION [None]
  - GRAFT VERSUS HOST DISEASE [None]
  - LUNG DISORDER [None]
  - ENCEPHALITIS [None]
  - EPILEPSY [None]
  - RESPIRATORY FAILURE [None]
  - DRUG INEFFECTIVE [None]
